FAERS Safety Report 9539120 (Version 1)
Quarter: 2013Q2

REPORT INFORMATION
  Report Type: Spontaneous
  Country: US (occurrence: None)
  Receive Date: 20130517
  Receipt Date: 20130517
  Transmission Date: 20140414
  Serious: No
  Sender: FDA-Public Use
  Company Number: 1000042467

PATIENT
  Age: 51 Year
  Sex: Female

DRUGS (9)
  1. VIIBRYD (VILLAZODONE HYDROCHLORIDE) (10 MILLIGRAM, TABLETS) [Suspect]
     Indication: MAJOR DEPRESSION
     Dosage: 10 MG (10 MG, 1 IN 1 D), ORAL
     Route: 048
     Dates: start: 20130124, end: 20130131
  2. VIIBRYD [Suspect]
     Indication: MAJOR DEPRESSION
     Dosage: 40MG (40 MG, 1 IN 1 D), ORAL
     Route: 048
     Dates: start: 20130207, end: 20130211
  3. SERTRALINE (SERTRALINE) (SERTRALINE) [Concomitant]
  4. ATORVASTATIN (ATORVASTATIN) (ATORVASTATIN) [Concomitant]
  5. LISINOPRIL (LISINOPRIL) (LISINOPRIL) [Concomitant]
  6. ENBREL (ETANERCEPT) (ETANERCEPT) [Concomitant]
  7. NUCYNTA (TAPENTADOL HYDROCHLORIDE) (TAPENTADOL HYDROCHLORIDE) [Concomitant]
  8. ALPRAZOLAM (ALPRAZOLAM) (ALPRAZOLAM) [Concomitant]
  9. PREDNISONE (PREDNISONE) (PREDNISONE) [Concomitant]

REACTIONS (3)
  - Insomnia [None]
  - Abnormal dreams [None]
  - Myalgia [None]
